FAERS Safety Report 5747704-6 (Version None)
Quarter: 2008Q2

REPORT INFORMATION
  Report Type: 
  Country: None (occurrence: None)
  Receive Date: 20080523
  Receipt Date: 20080512
  Transmission Date: 20081010
  Serious: Yes (Hospitalization)
  Sender: FDA-Public Use
  Company Number: IT-ROCHE-563620

PATIENT
  Sex: Male

DRUGS (2)
  1. PEGASYS [Suspect]
     Indication: HEPATITIS C
     Dosage: FORMULATION: SYRINGE
     Route: 058
     Dates: start: 20080218, end: 20080420
  2. COPEGUS [Suspect]
     Indication: HEPATITIS C
     Route: 048
     Dates: start: 20080218, end: 20080420

REACTIONS (6)
  - HOT FLUSH [None]
  - HYPERPYREXIA [None]
  - HYPOTENSION [None]
  - MYALGIA [None]
  - SYNCOPE [None]
  - VOMITING [None]
